FAERS Safety Report 10905154 (Version 1)
Quarter: 2015Q1

REPORT INFORMATION
  Report Type: Spontaneous
  Country: US (occurrence: None)
  Receive Date: 20150309
  Receipt Date: 20150309
  Transmission Date: 20150721
  Serious: Yes (Hospitalization)
  Sender: FDA-Public Use
  Company Number: None

PATIENT
  Age: 68 Year
  Sex: Female
  Weight: 67.8 kg

DRUGS (1)
  1. ALIMTA [Suspect]
     Active Substance: PEMETREXED DISODIUM

REACTIONS (3)
  - Dyspnoea [None]
  - Fatigue [None]
  - Respiratory failure [None]

NARRATIVE: CASE EVENT DATE: 20150226
